FAERS Safety Report 9652020 (Version 1)
Quarter: 2013Q4

REPORT INFORMATION
  Report Type: Spontaneous
  Country: CA (occurrence: None)
  Receive Date: 20131025
  Receipt Date: 20131025
  Transmission Date: 20140711
  Serious: Yes (Other)
  Sender: FDA-Public Use
  Company Number: DEP_01246_2013

PATIENT
  Age: 69 Year
  Sex: Male

DRUGS (7)
  1. GABAPENTIN [Suspect]
     Indication: ESSENTIAL TREMOR
     Dosage: WEEKLY BY 300 MG TO 1500 MG DAILY
     Dates: start: 2012, end: 2012
  2. GABAPENTIN [Suspect]
     Indication: OFF LABEL USE
     Dosage: WEEKLY BY 300 MG TO 1500 MG DAILY
     Dates: start: 2012, end: 2012
  3. PRIMEDONE [Concomitant]
  4. PREDNISONE [Concomitant]
  5. SULFASALAZINE [Concomitant]
  6. AMITRIPTYLINE [Concomitant]
  7. DIAZEPAM [Concomitant]

REACTIONS (1)
  - Myasthenia gravis [None]
